FAERS Safety Report 10061589 (Version 1)
Quarter: 2014Q2

REPORT INFORMATION
  Report Type: Spontaneous
  Country: GB (occurrence: GB)
  Receive Date: 20140407
  Receipt Date: 20140407
  Transmission Date: 20141212
  Serious: Yes (Disabling)
  Sender: FDA-Public Use
  Company Number: GB-SA-2014SA038751

PATIENT
  Age: 48 Year
  Sex: Female

DRUGS (4)
  1. CHLOROQUINE (SALT NOT SPECIFIED) [Suspect]
     Indication: CUTANEOUS LUPUS ERYTHEMATOSUS
     Route: 048
     Dates: start: 20100101, end: 20131001
  2. MEPACRINE [Interacting]
     Indication: CUTANEOUS LUPUS ERYTHEMATOSUS
     Route: 048
     Dates: start: 20130201, end: 20131001
  3. FOLIC ACID [Concomitant]
  4. METHOTREXATE [Concomitant]

REACTIONS (6)
  - Neuromyopathy [Recovering/Resolving]
  - Drug interaction [Unknown]
  - Muscular weakness [Recovering/Resolving]
  - Areflexia [Recovering/Resolving]
  - Muscle atrophy [Recovering/Resolving]
  - Neuromuscular toxicity [Recovering/Resolving]
